FAERS Safety Report 4318968-0 (Version None)
Quarter: 2004Q1

REPORT INFORMATION
  Report Type: 
  Country: None (occurrence: None)
  Receive Date: 20040317
  Receipt Date: 20040317
  Transmission Date: 20041129
  Serious: No
  Sender: FDA-Public Use
  Company Number: None

PATIENT
  Age: 72 Year
  Sex: Male

DRUGS (8)
  1. ENOXAPARIN SODIUM [Suspect]
     Dosage: 120 MG SQ BID
     Route: 058
  2. PROTAMINE SULFATE [Concomitant]
  3. NOREPINEPHRINE [Concomitant]
  4. VASOPRESSIN [Concomitant]
  5. CISATRACURIUM [Concomitant]
  6. MIDAZOLAM HCL [Concomitant]
  7. FENTANYL [Concomitant]
  8. SOD. BICARB [Concomitant]

REACTIONS (1)
  - RENAL FAILURE ACUTE [None]
